FAERS Safety Report 17140866 (Version 1)
Quarter: 2019Q4

REPORT INFORMATION
  Report Type: Spontaneous
  Country: CN (occurrence: CN)
  Receive Date: 20191211
  Receipt Date: 20191211
  Transmission Date: 20200122
  Serious: Yes (Death)
  Sender: FDA-Public Use
  Company Number: CN-009507513-1912CHN001469

PATIENT
  Age: 54 Year
  Sex: Male

DRUGS (2)
  1. CEFOPERAZONE SODIUM (+) TAZOBACTAM SODIUM [Concomitant]
     Indication: INFECTION
     Dosage: UNK
     Dates: start: 201207, end: 201207
  2. IMIPENEM AND CILASTATIN [Suspect]
     Active Substance: CILASTATIN SODIUM\IMIPENEM
     Indication: BURKHOLDERIA PSEUDOMALLEI INFECTION
     Dosage: UNK
     Dates: start: 20120720, end: 201207

REACTIONS (1)
  - Drug ineffective [Fatal]

NARRATIVE: CASE EVENT DATE: 201207
